FAERS Safety Report 17248660 (Version 2)
Quarter: 2020Q1

REPORT INFORMATION
  Report Type: Spontaneous
  Country: IE (occurrence: IE)
  Receive Date: 20200108
  Receipt Date: 20200204
  Transmission Date: 20200409
  Serious: Yes (Hospitalization)
  Sender: FDA-Public Use
  Company Number: IE-JNJFOC-20200100066

PATIENT
  Age: 50 Year
  Sex: Male

DRUGS (22)
  1. DULOXETINE. [Suspect]
     Active Substance: DULOXETINE
     Indication: PAIN
     Dosage: 60 MG PER DAY
     Route: 065
  2. DULOXETINE. [Suspect]
     Active Substance: DULOXETINE
     Dosage: 60MG IN THE MORNING, 30MG IN THE AFTERNOON
     Route: 065
  3. AMITRIPTYLINE [Suspect]
     Active Substance: AMITRIPTYLINE
     Dosage: 10 MG IN THE EVENING
     Route: 065
  4. OXYCODONE [Suspect]
     Active Substance: OXYCODONE
     Dosage: 70 MG, 2X PER DAY
     Route: 048
  5. AMITRIPTYLINE [Suspect]
     Active Substance: AMITRIPTYLINE
     Dosage: 25 MG IN THE EVENING, PER DAY
     Route: 065
  6. KETAMINE [Suspect]
     Active Substance: KETAMINE
     Indication: PRODUCT USED FOR UNKNOWN INDICATION
     Route: 065
  7. KETAMINE [Suspect]
     Active Substance: KETAMINE
     Dosage: 45 MG, 3X PER DAY
     Route: 065
  8. DULOXETINE. [Suspect]
     Active Substance: DULOXETINE
     Dosage: 60 MG IN THE MORNING + 30MG IN THE EVENING, PER DAY
     Route: 065
  9. AMITRIPTYLINE [Suspect]
     Active Substance: AMITRIPTYLINE
     Indication: PAIN
     Dosage: 10 MG IN THE EVENING
     Route: 065
  10. METHADONE HYDROCHLORIDE. [Suspect]
     Active Substance: METHADONE HYDROCHLORIDE
     Dosage: 20 MG, 2X PER DAY
     Route: 048
  11. KETAMINE [Suspect]
     Active Substance: KETAMINE
     Dosage: 45 MG, 3X PER DAY
     Route: 065
  12. PREGABALIN. [Suspect]
     Active Substance: PREGABALIN
     Indication: PAIN
     Dosage: 300 MG, 2X PER DAY
     Route: 048
  13. METHADONE HYDROCHLORIDE. [Suspect]
     Active Substance: METHADONE HYDROCHLORIDE
     Dosage: 100 MG, 2X PER DAY
     Route: 048
  14. KETAMINE [Suspect]
     Active Substance: KETAMINE
     Indication: PAIN
     Dosage: 10 MG, 3X PER DAY
     Route: 048
  15. HALDOL [Suspect]
     Active Substance: HALOPERIDOL
     Indication: HALLUCINATION
     Dosage: UNK
     Route: 048
  16. CLONAZEPAM. [Suspect]
     Active Substance: CLONAZEPAM
     Indication: PAIN
     Dosage: 1 MG IN THE EVENING
     Route: 048
  17. OXYCODONE [Suspect]
     Active Substance: OXYCODONE
     Indication: PAIN
     Dosage: 210 MG, 2X PER DAY
     Route: 048
  18. OXYCODONE [Suspect]
     Active Substance: OXYCODONE
     Dosage: 120 MG, 2X PER DAY
     Route: 048
  19. AMITRIPTYLINE [Suspect]
     Active Substance: AMITRIPTYLINE
     Dosage: 100 MG IN THE EVENING
     Route: 065
  20. METHADONE HYDROCHLORIDE. [Suspect]
     Active Substance: METHADONE HYDROCHLORIDE
     Dosage: 220 MG, 2X PER DAY
     Route: 048
  21. KETAMINE [Suspect]
     Active Substance: KETAMINE
     Indication: PRODUCT USED FOR UNKNOWN INDICATION
     Route: 058
  22. METHADONE HYDROCHLORIDE. [Suspect]
     Active Substance: METHADONE HYDROCHLORIDE
     Indication: PAIN
     Dosage: 70 MG, 2X PER DAY
     Route: 048

REACTIONS (4)
  - Abnormal dreams [Unknown]
  - Hallucination [Unknown]
  - Toxicity to various agents [Unknown]
  - Drug ineffective [Recovered/Resolved]
